FAERS Safety Report 25143180 (Version 3)
Quarter: 2025Q2

REPORT INFORMATION
  Report Type: Spontaneous
  Country: US (occurrence: US)
  Receive Date: 20250401
  Receipt Date: 20250423
  Transmission Date: 20250717
  Serious: No
  Sender: EMCURE PHARMACEUTICALS LTD
  Company Number: US-AVET LIFESCIENCES LTD-2025-AVET-000086

PATIENT

DRUGS (5)
  1. PROPOFOL [Suspect]
     Active Substance: PROPOFOL
     Indication: Sedation
     Route: 065
     Dates: start: 20250318, end: 20250318
  2. DILAUDID [Concomitant]
     Active Substance: HYDROMORPHONE HYDROCHLORIDE
  3. FENTANYL [Concomitant]
     Active Substance: FENTANYL
  4. SUCCINYLCHOLINE [Concomitant]
     Active Substance: SUCCINYLCHOLINE
  5. KETAMINE [Concomitant]
     Active Substance: KETAMINE

REACTIONS (1)
  - Drug ineffective [Unknown]
